FAERS Safety Report 9984586 (Version 8)
Quarter: 2014Q4

REPORT INFORMATION
  Report Type: Report from Study
  Country: AU (occurrence: AU)
  Receive Date: 20140307
  Receipt Date: 20141121
  Transmission Date: 20150529
  Serious: Yes (Hospitalization, Other)
  Sender: FDA-Public Use
  Company Number: PHHO2014AU003062

PATIENT
  Age: 59 Year
  Sex: Male
  Weight: 106 kg

DRUGS (13)
  1. PANITUMUMAB [Suspect]
     Active Substance: PANITUMUMAB
     Indication: COLORECTAL CANCER METASTATIC
     Dosage: 680 MG, UNK
     Route: 042
     Dates: start: 20131029, end: 20140221
  2. ENOXAPARIN [Concomitant]
     Active Substance: ENOXAPARIN
     Dosage: 100 MG, UNK
     Route: 048
     Dates: start: 20130910
  3. ATORVASTATIN [Concomitant]
     Active Substance: ATORVASTATIN
     Indication: BLOOD CHOLESTEROL
     Dosage: 40 MG, UNK
     Route: 048
     Dates: start: 20131024
  4. MAGMIN [Concomitant]
     Active Substance: MAGNESIUM ASPARTATE
     Indication: HYPOMAGNESAEMIA
     Dosage: 3 DF, UNK
     Route: 048
     Dates: start: 20131126
  5. DOXYCYCLINE. [Concomitant]
     Active Substance: DOXYCYCLINE
     Indication: RASH
     Dosage: 100 MG, UNK
     Route: 048
     Dates: start: 20131112
  6. PANITUMUMAB [Suspect]
     Active Substance: PANITUMUMAB
     Dosage: UNK
     Route: 042
     Dates: start: 20140314, end: 20140624
  7. AFINITOR [Suspect]
     Active Substance: EVEROLIMUS
     Dosage: UNK
     Route: 048
     Dates: start: 20140314, end: 20140624
  8. AFINITOR [Suspect]
     Active Substance: EVEROLIMUS
     Dosage: 5 MG, UNK
     Route: 048
     Dates: start: 20140701
  9. IRINOTECAN [Suspect]
     Active Substance: IRINOTECAN
     Indication: COLORECTAL CANCER METASTATIC
     Dosage: 830 MG, UNK
     Route: 042
     Dates: start: 20131029, end: 20140221
  10. IRINOTECAN [Suspect]
     Active Substance: IRINOTECAN
     Dosage: UNK
     Route: 042
     Dates: start: 20140314, end: 20140624
  11. AFINITOR [Suspect]
     Active Substance: EVEROLIMUS
     Indication: COLORECTAL CANCER METASTATIC
     Dosage: 5 MG, UNK
     Route: 048
     Dates: start: 20131029, end: 20140221
  12. PANITUMUMAB [Suspect]
     Active Substance: PANITUMUMAB
     Dosage: 540 MG, UNK
     Route: 042
     Dates: start: 20140701
  13. IRINOTECAN [Suspect]
     Active Substance: IRINOTECAN
     Dosage: 330 MG, UNK
     Route: 042
     Dates: start: 20140701

REACTIONS (3)
  - Pneumothorax [Recovered/Resolved]
  - Skin infection [Recovered/Resolved]
  - Rash [Not Recovered/Not Resolved]

NARRATIVE: CASE EVENT DATE: 20140226
